FAERS Safety Report 12924334 (Version 2)
Quarter: 2017Q1

REPORT INFORMATION
  Report Type: Spontaneous
  Country: US (occurrence: US)
  Receive Date: 20161109
  Receipt Date: 20170104
  Transmission Date: 20170428
  Serious: Yes (Other)
  Sender: FDA-Public Use
  Company Number: US-INCYTE CORPORATION-2016IN005176

PATIENT
  Age: 19 Year
  Sex: Male
  Weight: 42 kg

DRUGS (27)
  1. JAKAFI [Suspect]
     Active Substance: RUXOLITINIB
     Indication: GRAFT VERSUS HOST DISEASE
     Dosage: 5 MG, BID
     Route: 048
     Dates: start: 20151008
  2. COZAAR [Suspect]
     Active Substance: LOSARTAN POTASSIUM
     Indication: HYPERTENSION
     Dosage: 25 MG, QD
     Route: 051
  3. ZITHROMAX [Concomitant]
     Active Substance: AZITHROMYCIN DIHYDRATE
     Indication: PRODUCT USED FOR UNKNOWN INDICATION
     Dosage: 250 MG, MON, WED, FRI
     Route: 048
  4. LOVENOX [Concomitant]
     Active Substance: ENOXAPARIN SODIUM
     Indication: DEEP VEIN THROMBOSIS
     Dosage: 20 MG, BID
     Route: 058
  5. JAKAFI [Suspect]
     Active Substance: RUXOLITINIB
     Dosage: UNK
     Dates: start: 20160817
  6. ATIVAN [Concomitant]
     Active Substance: LORAZEPAM
     Indication: VOMITING
  7. ZOFRAN [Concomitant]
     Active Substance: ONDANSETRON HYDROCHLORIDE
     Indication: VOMITING
  8. JAKAFI [Suspect]
     Active Substance: RUXOLITINIB
     Dosage: 5 MG, BID
     Route: 048
     Dates: start: 201511
  9. REGLAN [Concomitant]
     Active Substance: METOCLOPRAMIDE HYDROCHLORIDE
     Indication: GASTROOESOPHAGEAL REFLUX DISEASE
     Dosage: 5 MG, BID
     Route: 048
  10. BECLOMETHASONE                     /00212602/ [Concomitant]
     Active Substance: BECLOMETHASONE
     Indication: PRODUCT USED FOR UNKNOWN INDICATION
  11. DELTASONE [Concomitant]
     Active Substance: PREDNISONE
     Indication: PRODUCT USED FOR UNKNOWN INDICATION
     Dosage: 50 MG, QOD
     Route: 051
  12. ATIVAN [Concomitant]
     Active Substance: LORAZEPAM
     Indication: NAUSEA
     Dosage: 0.6 MG, Q12 HOURS PRN
     Route: 051
  13. ATIVAN [Concomitant]
     Active Substance: LORAZEPAM
     Indication: ANXIETY
  14. ZYRTEC [Concomitant]
     Active Substance: CETIRIZINE HYDROCHLORIDE
     Indication: PRODUCT USED FOR UNKNOWN INDICATION
     Dosage: 10 MG, QD
  15. ZOFRAN [Concomitant]
     Active Substance: ONDANSETRON HYDROCHLORIDE
     Indication: NAUSEA
     Dosage: 4 MG, Q8 HRS PRN
     Route: 051
  16. JAKAFI [Suspect]
     Active Substance: RUXOLITINIB
     Dosage: 10 MG, QD
     Route: 048
  17. SIMVASTATIN. [Concomitant]
     Active Substance: SIMVASTATIN
     Indication: PRODUCT USED FOR UNKNOWN INDICATION
  18. PHENERGAN [Concomitant]
     Active Substance: PROMETHAZINE HYDROCHLORIDE
     Indication: VOMITING
  19. ATIVAN [Concomitant]
     Active Substance: LORAZEPAM
     Indication: SLEEP DISORDER
  20. ZOLOFT [Concomitant]
     Active Substance: SERTRALINE HYDROCHLORIDE
     Indication: DEPRESSION
     Dosage: 50 MG, QD
     Route: 051
  21. PHENERGAN [Concomitant]
     Active Substance: PROMETHAZINE HYDROCHLORIDE
     Indication: NAUSEA
     Dosage: 25 MG, START AND END OF GT FEEDS QD AND Q8 HRS PRN
     Route: 048
  22. ARTIFICIAL TEARS                   /00445101/ [Concomitant]
     Indication: DRY EYE
     Dosage: 2 DROPS, BOTH EYES PRN
     Route: 047
  23. RAPAMUNE [Concomitant]
     Active Substance: SIROLIMUS
     Indication: PRODUCT USED FOR UNKNOWN INDICATION
     Dosage: 1 MG, QD
     Route: 051
  24. PREVACID [Concomitant]
     Active Substance: LANSOPRAZOLE
     Indication: PRODUCT USED FOR UNKNOWN INDICATION
     Dosage: 30 MG, BID
     Route: 048
  25. METHADONE [Concomitant]
     Active Substance: METHADONE HYDROCHLORIDE
     Indication: PAIN
  26. TUMS ULTRA [Concomitant]
     Active Substance: CALCIUM CARBONATE
     Indication: PRODUCT USED FOR UNKNOWN INDICATION
     Route: 048
  27. ADVIL [Concomitant]
     Active Substance: IBUPROFEN
     Indication: PRODUCT USED FOR UNKNOWN INDICATION
     Route: 048

REACTIONS (43)
  - Graft versus host disease in liver [Recovering/Resolving]
  - Liver function test increased [Recovering/Resolving]
  - Alopecia [Unknown]
  - Photophobia [Unknown]
  - Musculoskeletal stiffness [Unknown]
  - Joint range of motion decreased [Recovering/Resolving]
  - Dilatation atrial [Unknown]
  - Electrocardiogram QT prolonged [Unknown]
  - Vocal cord paralysis [Unknown]
  - Autoimmune hepatitis [Unknown]
  - Lung disorder [Unknown]
  - Aspartate aminotransferase increased [Recovering/Resolving]
  - Cholelithiasis [Unknown]
  - Liver disorder [Unknown]
  - Hepatocellular injury [Unknown]
  - Muscular weakness [Unknown]
  - Decubitus ulcer [Recovered/Resolved]
  - Vitamin D deficiency [Unknown]
  - Weight increased [Unknown]
  - Iron overload [Not Recovered/Not Resolved]
  - Renal disorder [Unknown]
  - Hepatic fibrosis [Unknown]
  - Dry eye [Unknown]
  - Paraesthesia [Unknown]
  - Skin texture abnormal [Recovering/Resolving]
  - Sleep disorder [Unknown]
  - Headache [Unknown]
  - Nausea [Unknown]
  - Respiratory failure [Recovered/Resolved]
  - Pancreatic disorder [Unknown]
  - Hepatitis [Unknown]
  - Renal failure [Recovering/Resolving]
  - Off label use [Not Recovered/Not Resolved]
  - Gamma-glutamyltransferase increased [Recovering/Resolving]
  - Alanine aminotransferase increased [Recovering/Resolving]
  - Breath sounds abnormal [Unknown]
  - Hyperlipidaemia [Unknown]
  - Supraventricular extrasystoles [Unknown]
  - Electrocardiogram T wave inversion [Unknown]
  - Arthralgia [Unknown]
  - Spleen atrophy [Unknown]
  - Venous injury [Unknown]
  - Hypertension [Unknown]

NARRATIVE: CASE EVENT DATE: 201511
